FAERS Safety Report 7707820-6 (Version None)
Quarter: 2011Q3

REPORT INFORMATION
  Report Type: 
  Country: None (occurrence: None)
  Receive Date: 20110824
  Receipt Date: 20110818
  Transmission Date: 20111222
  Serious: Yes (Hospitalization, Other)
  Sender: FDA-Public Use
  Company Number: PHHY2011FR71505

PATIENT
  Sex: Male
  Weight: 104 kg

DRUGS (15)
  1. METOPIRONE [Suspect]
     Dosage: 12 DF, PER DAY
     Route: 048
     Dates: start: 20110513
  2. POTASSIUM CHLORIDE [Concomitant]
     Dosage: UNK UKN, UNK
  3. METOPIRONE [Suspect]
     Dosage: 4 DF, UNK
     Route: 048
     Dates: start: 20110525
  4. METOPIRONE [Suspect]
     Dosage: 9 DF, DAILY
     Route: 048
     Dates: start: 20101118, end: 20101213
  5. LYSODREN [Suspect]
     Dosage: 2 DF, BID
     Route: 048
     Dates: start: 20091201
  6. LYSODREN [Suspect]
     Dosage: 1 DF, BID
     Route: 048
     Dates: start: 20101228
  7. METOPIRONE [Suspect]
     Indication: PITUITARY-DEPENDENT CUSHING'S SYNDROME
     Dosage: 6 DF, DAILY
     Route: 048
     Dates: start: 20101116, end: 20101117
  8. ALDACTONE [Suspect]
     Indication: HYPERTENSION
     Dosage: 75 MG, UNK
     Route: 048
     Dates: start: 20101118, end: 20101213
  9. LEVOTHYROXINE SODIUM [Concomitant]
     Dosage: 150 UG, DAILY
     Route: 048
  10. LEVOTHYROXINE SODIUM [Concomitant]
     Dosage: 175 UG, UNK
  11. METOPIRONE [Suspect]
     Dosage: 16 DF, DAILY
     Dates: start: 20110516
  12. ALDACTONE [Suspect]
     Dosage: 75 MG, BID
     Dates: start: 20110501
  13. LERCANIDIPINE [Suspect]
     Dosage: UNK UKN, UNK
  14. HYDROCORTISONE [Concomitant]
     Indication: ADRENOCORTICAL INSUFFICIENCY ACUTE
     Dosage: 20 MG, UNK
     Dates: start: 20101122
  15. HYDROCORTISONE [Concomitant]
     Dosage: 20 MG, UNK

REACTIONS (6)
  - WEIGHT DECREASED [None]
  - HEPATITIS [None]
  - ALANINE AMINOTRANSFERASE INCREASED [None]
  - ASPARTATE AMINOTRANSFERASE INCREASED [None]
  - GAMMA-GLUTAMYLTRANSFERASE INCREASED [None]
  - FATIGUE [None]
